FAERS Safety Report 25009630 (Version 1)
Quarter: 2025Q1

REPORT INFORMATION
  Report Type: Spontaneous
  Country: RO (occurrence: RO)
  Receive Date: 20250225
  Receipt Date: 20250225
  Transmission Date: 20250408
  Serious: Yes (Other)
  Sender: BIOVITRUM
  Company Number: RO-BIOVITRUM-2025-RO-002453

PATIENT

DRUGS (2)
  1. KINERET [Suspect]
     Active Substance: ANAKINRA
     Indication: Product used for unknown indication
     Dates: start: 202412
  2. CYCLOSPORINE [Suspect]
     Active Substance: CYCLOSPORINE
     Indication: Product used for unknown indication

REACTIONS (3)
  - Injection site erythema [Unknown]
  - Pain in extremity [Unknown]
  - Injection site nodule [Unknown]
